FAERS Safety Report 5521868-1 (Version None)
Quarter: 2007Q4

REPORT INFORMATION
  Report Type: 
  Country: None (occurrence: None)
  Receive Date: 20071120
  Receipt Date: 20071116
  Transmission Date: 20080405
  Serious: Yes (Hospitalization)
  Sender: FDA-Public Use
  Company Number: FR-WYE-G00477907

PATIENT
  Age: 85 Year
  Sex: Male

DRUGS (13)
  1. TAZOCILLINE [Suspect]
     Indication: ESCHERICHIA SEPSIS
     Route: 042
     Dates: start: 20070730, end: 20070819
  2. TAZOCILLINE [Suspect]
     Indication: BACTERIAL PYELONEPHRITIS
  3. TAZOCILLINE [Suspect]
     Indication: CATHETER RELATED INFECTION
  4. INEXIUM [Suspect]
     Indication: DRUG USE FOR UNKNOWN INDICATION
     Dosage: 20 MG TOTAL DAILY
     Route: 048
     Dates: start: 20070819
  5. LEVOTHYROXINE SODIUM [Concomitant]
     Dosage: UNKNOWN
  6. VANCOMYCIN [Suspect]
     Indication: ESCHERICHIA SEPSIS
     Dosage: UNKNOWN
     Dates: start: 20070101, end: 20070101
  7. VANCOMYCIN [Suspect]
     Indication: BACTERIAL PYELONEPHRITIS
  8. VANCOMYCIN [Suspect]
     Indication: CATHETER RELATED INFECTION
  9. HEMIGOXINE NATIVELLE [Concomitant]
     Dosage: UNKNOWN
  10. ATARAX [Concomitant]
     Dosage: UNKNOWN
  11. BISOPROLOL FUMARATE [Concomitant]
     Dosage: UNKNOWN
  12. SINTROM [Suspect]
     Indication: DRUG USE FOR UNKNOWN INDICATION
     Route: 048
     Dates: end: 20070817
  13. DIFFU K [Concomitant]
     Dosage: UNKNOWN

REACTIONS (2)
  - HAEMORRHAGE URINARY TRACT [None]
  - INTERNATIONAL NORMALISED RATIO INCREASED [None]
